FAERS Safety Report 15326899 (Version 1)
Quarter: 2018Q3

REPORT INFORMATION
  Report Type: Spontaneous
  Country: AT (occurrence: AT)
  Receive Date: 20180828
  Receipt Date: 20180828
  Transmission Date: 20181010
  Serious: Yes (Life-Threatening)
  Sender: FDA-Public Use
  Company Number: PHHY2018AT081159

PATIENT
  Age: 55 Year
  Sex: Male

DRUGS (1)
  1. CURAM [Suspect]
     Active Substance: AMOXICILLIN\CLAVULANATE POTASSIUM
     Indication: SURGERY
     Dosage: UNK
     Route: 042

REACTIONS (5)
  - Hypotension [Recovered/Resolved]
  - Generalised oedema [Recovered/Resolved]
  - Cardiac failure [Recovered/Resolved]
  - Respiratory distress [Recovered/Resolved]
  - Type I hypersensitivity [Recovered/Resolved]

NARRATIVE: CASE EVENT DATE: 20180606
